FAERS Safety Report 5690699-4 (Version None)
Quarter: 2008Q2

REPORT INFORMATION
  Report Type: 
  Country: None (occurrence: None)
  Receive Date: 20080401
  Receipt Date: 20080325
  Transmission Date: 20081010
  Serious: Yes (Hospitalization)
  Sender: FDA-Public Use
  Company Number: US-MERCK-0802USA04024

PATIENT
  Age: 65 Year
  Sex: Female
  Weight: 107 kg

DRUGS (15)
  1. JANUMET [Suspect]
     Route: 048
  2. NEURONTIN [Concomitant]
     Route: 065
  3. GLYBURIDE [Concomitant]
     Route: 065
  4. LISINOPRIL [Concomitant]
     Route: 065
  5. ZOLOFT [Concomitant]
     Route: 065
  6. TOPROL-XL [Concomitant]
     Route: 065
  7. POTASSIUM (UNSPECIFIED) [Concomitant]
     Route: 065
  8. FUROSEMIDE [Concomitant]
     Route: 065
  9. LANTUS [Concomitant]
     Route: 065
  10. NOVOLOG [Concomitant]
     Route: 065
  11. PREVACID [Concomitant]
     Route: 065
  12. NORVASC [Concomitant]
     Route: 065
  13. ZOCOR [Concomitant]
     Route: 048
  14. LORCET-HD [Concomitant]
     Route: 065
  15. GEODON [Concomitant]
     Route: 065

REACTIONS (2)
  - INAPPROPRIATE SCHEDULE OF DRUG ADMINISTRATION [None]
  - PANCREATITIS ACUTE [None]
